FAERS Safety Report 8339381-5 (Version None)
Quarter: 2012Q2

REPORT INFORMATION
  Report Type: 
  Country: None (occurrence: None)
  Receive Date: 20120507
  Receipt Date: 20120425
  Transmission Date: 20120825
  Serious: Yes (Other)
  Sender: FDA-Public Use
  Company Number: GB-TEVA-334855ISR

PATIENT
  Age: 79 Year
  Sex: Female

DRUGS (6)
  1. DILTIAZEM HCL [Concomitant]
     Dosage: ONE TO BE TAKEN IN THE MORNING.
     Route: 048
     Dates: end: 20120328
  2. RAMIPRIL [Concomitant]
     Route: 048
  3. AMLODIPINE [Suspect]
     Indication: HYPERTENSION
     Route: 048
     Dates: start: 20120329
  4. NICORANDIL [Concomitant]
     Route: 048
     Dates: start: 20120329
  5. SIMVASTATIN [Concomitant]
     Dosage: ONE TO BE TAKEN AT NIGHT.
     Route: 048
  6. ASPIRIN AND DIPYRIDAMOLE [Concomitant]
     Route: 048

REACTIONS (3)
  - DYSPNOEA [None]
  - PALPITATIONS [None]
  - DYSARTHRIA [None]
